FAERS Safety Report 8176258-2 (Version None)
Quarter: 2012Q1

REPORT INFORMATION
  Report Type: 
  Country: None (occurrence: None)
  Receive Date: 20120301
  Receipt Date: 20120220
  Transmission Date: 20120608
  Serious: Yes (Other)
  Sender: FDA-Public Use
  Company Number: TH-JNJFOC-20111000579

PATIENT
  Sex: Female
  Weight: 47.5 kg

DRUGS (2)
  1. STELARA [Suspect]
     Indication: PRODUCT USED FOR UNKNOWN INDICATION
     Route: 058
     Dates: start: 20110711
  2. STELARA [Suspect]
     Route: 058
     Dates: start: 20100706

REACTIONS (1)
  - PULMONARY TUBERCULOSIS [None]
